FAERS Safety Report 21790824 (Version 1)
Quarter: 2022Q4

REPORT INFORMATION
  Report Type: Report from Study
  Country: US (occurrence: US)
  Receive Date: 20221228
  Receipt Date: 20221228
  Transmission Date: 20230113
  Serious: No
  Sender: FDA-Public Use
  Company Number: US-CLOVIS ONCOLOGY-CLO-2022-000674

PATIENT
  Sex: Male

DRUGS (5)
  1. RUBRACA [Suspect]
     Active Substance: RUCAPARIB CAMSYLATE
     Indication: Prostate cancer
     Dosage: 600 MILLIGRAM, BID
     Route: 048
     Dates: start: 20220520
  2. RUBRACA [Suspect]
     Active Substance: RUCAPARIB CAMSYLATE
     Dosage: 300 MILLIGRAM, BID
     Route: 048
     Dates: start: 20220622
  3. RUBRACA [Suspect]
     Active Substance: RUCAPARIB CAMSYLATE
     Dosage: 600 MILLIGRAM, BID
     Route: 048
     Dates: start: 202205
  4. RUBRACA [Suspect]
     Active Substance: RUCAPARIB CAMSYLATE
     Dosage: 300 MILLIGRAM, BID
     Route: 048
  5. ORGOVYX [Concomitant]
     Active Substance: RELUGOLIX
     Indication: Product used for unknown indication
     Dosage: UNK

REACTIONS (5)
  - Liver function test increased [Unknown]
  - Fatigue [Recovered/Resolved]
  - Nausea [Recovered/Resolved]
  - Red blood cell count decreased [Unknown]
  - Dizziness [Recovered/Resolved]

NARRATIVE: CASE EVENT DATE: 20220101
